FAERS Safety Report 17933123 (Version 2)
Quarter: 2021Q2

REPORT INFORMATION
  Report Type: Report from Study
  Country: US (occurrence: US)
  Receive Date: 20200623
  Receipt Date: 20210629
  Transmission Date: 20210717
  Serious: Yes (Death, Life-Threatening, Hospitalization)
  Sender: FDA-Public Use
  Company Number: US-TEVA-2020-US-1790247

PATIENT
  Age: 72 Year
  Sex: Female

DRUGS (5)
  1. CLOPIDOGREL [Suspect]
     Active Substance: CLOPIDOGREL BISULFATE
     Route: 065
  2. ASPIRIN. [Suspect]
     Active Substance: ASPIRIN
     Route: 048
  3. EPTIFIBATIDE. [Suspect]
     Active Substance: EPTIFIBATIDE
     Route: 040
  4. EPTIFIBATIDE. [Suspect]
     Active Substance: EPTIFIBATIDE
     Route: 041
  5. CLOPIDOGREL [Suspect]
     Active Substance: CLOPIDOGREL BISULFATE
     Route: 048

REACTIONS (3)
  - Extravasation blood [Fatal]
  - Pelvic haematoma [Fatal]
  - Haemoglobin decreased [Unknown]
